FAERS Safety Report 19378436 (Version 4)
Quarter: 2023Q1

REPORT INFORMATION
  Report Type: Spontaneous
  Country: None (occurrence: CA)
  Receive Date: 20210605
  Receipt Date: 20230126
  Transmission Date: 20230418
  Serious: Yes (Other)
  Sender: FDA-Public Use
  Company Number: CA-ASCEND THERAPEUTICS US, LLC-2112391

PATIENT
  Age: 54 Year
  Sex: Female

DRUGS (4)
  1. ESTROGEL [Suspect]
     Active Substance: ESTRADIOL
     Indication: Hormone replacement therapy
     Route: 065
     Dates: start: 202104, end: 2021
  2. ESTROGEL [Suspect]
     Active Substance: ESTRADIOL
  3. ESTROGEL [Suspect]
     Active Substance: ESTRADIOL
     Route: 065
     Dates: start: 202104, end: 2021
  4. ESTROGEL [Suspect]
     Active Substance: ESTRADIOL
     Route: 065
     Dates: start: 20210523

REACTIONS (6)
  - Coma [Unknown]
  - Dizziness [Unknown]
  - Incorrect dosage administered [None]
  - Respiration abnormal [Unknown]
  - Product quality issue [None]
  - Poor quality product administered [None]

NARRATIVE: CASE EVENT DATE: 20210401
